FAERS Safety Report 25094320 (Version 1)
Quarter: 2025Q1

REPORT INFORMATION
  Report Type: Spontaneous
  Country: US (occurrence: None)
  Receive Date: 20250318
  Receipt Date: 20250318
  Transmission Date: 20250409
  Serious: Yes (Hospitalization)
  Sender: FDA-CTU
  Company Number: None

PATIENT
  Sex: Female

DRUGS (1)
  1. NUCALA [Suspect]
     Active Substance: MEPOLIZUMAB
     Indication: Idiopathic urticaria
     Dosage: FREQUENCY : MONTHLY;?
     Route: 058
     Dates: start: 202401

REACTIONS (2)
  - Autoimmune disorder [None]
  - Condition aggravated [None]
